FAERS Safety Report 17075766 (Version 2)
Quarter: 2022Q3

REPORT INFORMATION
  Report Type: Other
  Country: IN (occurrence: None)
  Receive Date: 20191126
  Receipt Date: 20220803
  Transmission Date: 20221027
  Serious: Yes (Other)
  Sender: FDA-Public Use
  Company Number: IN-ROCHE-2223867

PATIENT
  Age: 51 Year
  Sex: Female

DRUGS (3)
  1. PERJETA [Suspect]
     Active Substance: PERTUZUMAB
     Indication: Breast cancer
     Route: 042
     Dates: start: 20170626, end: 20180511
  2. TRASTUZUMAB [Suspect]
     Active Substance: TRASTUZUMAB
     Indication: Breast cancer
     Route: 042
     Dates: start: 20170626, end: 20180511
  3. KADCYLA [Suspect]
     Active Substance: ADO-TRASTUZUMAB EMTANSINE
     Indication: Breast cancer metastatic
     Route: 042
     Dates: start: 20180804

REACTIONS (3)
  - Drug ineffective [Unknown]
  - Pneumonia [Unknown]
  - Jaundice [Unknown]
